FAERS Safety Report 9630594 (Version 1)
Quarter: 2013Q4

REPORT INFORMATION
  Report Type: Spontaneous
  Country: FR (occurrence: None)
  Receive Date: 20131011
  Receipt Date: 20131011
  Transmission Date: 20140711
  Serious: Yes (Other)
  Sender: FDA-Public Use
  Company Number: FR-ZYDUS-001955

PATIENT
  Age: 39 Year
  Sex: Male

DRUGS (2)
  1. RISPERIDONE (RISPERIDONE) [Suspect]
     Indication: BIPOLAR DISORDER
  2. BACLOFEN [Suspect]
     Indication: ALCOHOLISM

REACTIONS (5)
  - Blood triglycerides increased [None]
  - Overdose [None]
  - Hyponatraemia [None]
  - Weight increased [None]
  - Drug interaction [None]
